FAERS Safety Report 8245508-6 (Version None)
Quarter: 2012Q1

REPORT INFORMATION
  Report Type: 
  Country: None (occurrence: None)
  Receive Date: 20120329
  Receipt Date: 20120321
  Transmission Date: 20120608
  Serious: Yes (Hospitalization)
  Sender: FDA-Public Use
  Company Number: US-ASTRAZENECA-2011SE54955

PATIENT
  Age: 76 Year
  Sex: Female

DRUGS (3)
  1. SYMBICORT [Suspect]
     Route: 055
  2. NEXIUM [Suspect]
     Route: 048
  3. NEXIUM [Suspect]
     Dosage: TWICE DAILY
     Route: 048

REACTIONS (8)
  - BARRETT'S OESOPHAGUS [None]
  - DRUG PRESCRIBING ERROR [None]
  - ASTHMA [None]
  - INCREASED UPPER AIRWAY SECRETION [None]
  - SINUSITIS [None]
  - RESPIRATORY TRACT CONGESTION [None]
  - SCIATICA [None]
  - COUGH [None]
